FAERS Safety Report 6214238-4 (Version None)
Quarter: 2009Q2

REPORT INFORMATION
  Report Type: 
  Country: None (occurrence: None)
  Receive Date: 20090604
  Receipt Date: 20070626
  Transmission Date: 20091009
  Serious: Yes (Other)
  Sender: FDA-Public Use
  Company Number: US-ASTRAZENECA-2006UW10782

PATIENT
  Age: 14732 Day
  Sex: Male
  Weight: 124.7 kg

DRUGS (14)
  1. SEROQUEL [Suspect]
     Indication: MENTAL DISORDER
     Route: 048
     Dates: start: 20030101
  2. SEROQUEL [Suspect]
     Dosage: 200 MG TO 300 MG
     Route: 048
     Dates: start: 20030527
  3. ZYPREXA [Suspect]
     Dates: start: 20020201, end: 20030101
  4. ZYPREXA [Suspect]
  5. HALDOL [Concomitant]
  6. PERPHENAZINE [Concomitant]
  7. RISPERDAL [Concomitant]
  8. COGENTIN [Concomitant]
     Route: 048
     Dates: start: 20030527
  9. TORADOL [Concomitant]
     Route: 030
     Dates: start: 20041220
  10. GLUCOPHAGE [Concomitant]
     Route: 048
     Dates: start: 20040710
  11. GLYBURIDE [Concomitant]
     Dates: start: 20041101
  12. TRAZODONE HCL [Concomitant]
     Dates: start: 20060620
  13. XANAX [Concomitant]
     Indication: ANXIETY
     Route: 048
     Dates: start: 20040702
  14. AMBIEN [Concomitant]
     Dosage: 5 MG TO 10 MG
     Route: 048
     Dates: start: 20040709

REACTIONS (5)
  - DIABETES MELLITUS [None]
  - DIABETIC NEUROPATHY [None]
  - PANCREATITIS [None]
  - TYPE 1 DIABETES MELLITUS [None]
  - TYPE 2 DIABETES MELLITUS [None]
